FAERS Safety Report 15740148 (Version 1)
Quarter: 2018Q4

REPORT INFORMATION
  Report Type: Spontaneous
  Country: US (occurrence: US)
  Receive Date: 20181204
  Receipt Date: 20181204
  Transmission Date: 20190205
  Serious: Yes (Death)
  Sender: FDA-Public Use
  Company Number: None

PATIENT
  Age: 82 Year
  Sex: Male

DRUGS (9)
  1. ACYCLOVIR TAB 400MG [Concomitant]
     Active Substance: ACYCLOVIR
     Dates: start: 20180906
  2. RYDAPT [Suspect]
     Active Substance: MIDOSTAURIN
     Indication: MYELOID LEUKAEMIA
     Route: 048
  3. OFLOXACIN DROPS 0.3% OP [Concomitant]
     Dates: start: 20181112
  4. TEMAZEPAM CAP 15MG [Concomitant]
     Dates: start: 20180915
  5. MIDORINE TAB 10MG [Concomitant]
     Dates: start: 20180907
  6. SMZ/TMP DS TAB 800-160 [Concomitant]
     Active Substance: SULFAMETHOXAZOLE\TRIMETHOPRIM
     Dates: start: 20180917
  7. ALLOPURINOL TAB 300MG [Concomitant]
     Dates: start: 20181103
  8. FUROSEMIDE TAB 40MG [Concomitant]
     Dates: start: 20180912
  9. HYDROXYUREA CAP 500MG [Concomitant]
     Active Substance: HYDROXYUREA
     Dates: start: 20181106

REACTIONS (1)
  - Death [None]

NARRATIVE: CASE EVENT DATE: 20181115
